FAERS Safety Report 12860092 (Version 1)
Quarter: 2016Q4

REPORT INFORMATION
  Report Type: Spontaneous
  Country: US (occurrence: US)
  Receive Date: 20161019
  Receipt Date: 20161019
  Transmission Date: 20170207
  Serious: Yes (Other)
  Sender: FDA-Public Use
  Company Number: US-TEVA-702355ACC

PATIENT
  Age: 27 Year
  Sex: Female
  Weight: 55.39 kg

DRUGS (1)
  1. PARAGARD T 380A [Suspect]
     Active Substance: COPPER
     Indication: CONTRACEPTION
     Dates: start: 20160226

REACTIONS (5)
  - Vomiting [Unknown]
  - Pain [Unknown]
  - Device dislocation [Not Recovered/Not Resolved]
  - Discomfort [Unknown]
  - Muscle spasms [Unknown]

NARRATIVE: CASE EVENT DATE: 20160927
